FAERS Safety Report 8102872-6 (Version None)
Quarter: 2012Q1

REPORT INFORMATION
  Report Type: 
  Country: None (occurrence: None)
  Receive Date: 20120201
  Receipt Date: 20120127
  Transmission Date: 20120608
  Serious: Yes (Other)
  Sender: FDA-Public Use
  Company Number: GB-BAYER-2011-107300

PATIENT
  Age: 63 Year
  Sex: Male

DRUGS (2)
  1. ENOXAPARIN SODIUM [Concomitant]
     Indication: DEEP VEIN THROMBOSIS
     Dosage: 120 MG, UNK
     Route: 058
     Dates: start: 20101117
  2. SORAFENIB (RAF KINASE INHIBITOR) [Suspect]
     Indication: RENAL CELL CARCINOMA
     Dosage: 200 MG, UNK
     Route: 048
     Dates: start: 20101209, end: 20111110

REACTIONS (3)
  - PULMONARY EMBOLISM [None]
  - RETINAL VEIN THROMBOSIS [None]
  - PULMONARY INFARCTION [None]
